FAERS Safety Report 13333386 (Version 3)
Quarter: 2017Q2

REPORT INFORMATION
  Report Type: Report from Study
  Country: US (occurrence: US)
  Receive Date: 20170313
  Receipt Date: 20170407
  Transmission Date: 20170830
  Serious: Yes (Hospitalization)
  Sender: FDA-Public Use
  Company Number: US-BAYER-2017-034772

PATIENT
  Age: 59 Year
  Sex: Female

DRUGS (2)
  1. STIVARGA [Suspect]
     Active Substance: REGORAFENIB
     Indication: COLON CANCER
     Dosage: 160 MG, QD
     Route: 048
     Dates: start: 20170210, end: 20170227
  2. STIVARGA [Suspect]
     Active Substance: REGORAFENIB
     Indication: COLON CANCER
     Dosage: 160 MG, QD
     Route: 048
     Dates: start: 2017

REACTIONS (14)
  - Loss of consciousness [None]
  - Rash generalised [Recovering/Resolving]
  - Feeling abnormal [None]
  - Hypotension [None]
  - Influenza [None]
  - Diarrhoea [Not Recovered/Not Resolved]
  - Pyrexia [None]
  - Onychoclasis [Not Recovered/Not Resolved]
  - Oral mucosal eruption [Not Recovered/Not Resolved]
  - Hypoaesthesia [None]
  - Cough [None]
  - Vomiting [None]
  - Haemoptysis [None]
  - Stomatitis [Not Recovered/Not Resolved]

NARRATIVE: CASE EVENT DATE: 2017
